FAERS Safety Report 22617390 (Version 1)
Quarter: 2023Q2

REPORT INFORMATION
  Report Type: Report from Study
  Country: ES (occurrence: ES)
  Receive Date: 20230620
  Receipt Date: 20230620
  Transmission Date: 20230721
  Serious: Yes (Hospitalization)
  Sender: FDA-Public Use
  Company Number: ES-ABBVIE-5295999

PATIENT
  Age: 75 Year
  Sex: Male

DRUGS (2)
  1. CARBIDOPA\LEVODOPA [Suspect]
     Active Substance: CARBIDOPA\LEVODOPA
     Indication: Parkinson^s disease
     Route: 050
     Dates: start: 20190503
  2. CARBIDOPA\LEVODOPA [Suspect]
     Active Substance: CARBIDOPA\LEVODOPA

REACTIONS (5)
  - Respiratory tract infection [Recovered/Resolved]
  - Purulent discharge [Recovering/Resolving]
  - Stoma site hypergranulation [Recovering/Resolving]
  - Stoma site erythema [Recovering/Resolving]
  - Stoma site infection [Recovered/Resolved]

NARRATIVE: CASE EVENT DATE: 20230501
